FAERS Safety Report 20963940 (Version 1)
Quarter: 2022Q2

REPORT INFORMATION
  Report Type: Spontaneous
  Country: US (occurrence: None)
  Receive Date: 20220615
  Receipt Date: 20220615
  Transmission Date: 20220721
  Serious: Yes (Hospitalization)
  Sender: FDA-Public Use
  Company Number: None

PATIENT
  Age: 48 Year
  Sex: Male

DRUGS (6)
  1. ACTHAR [Suspect]
     Active Substance: CORTICOTROPIN
     Indication: Nephrotic syndrome
     Dosage: FREQUENCY : TWICE A WEEK;?
     Route: 058
     Dates: start: 20210223
  2. ATORVASTATIN [Concomitant]
     Active Substance: ATORVASTATIN
  3. LISINOPRIL [Concomitant]
     Active Substance: LISINOPRIL
  4. LEVOTHYROXINE [Concomitant]
     Active Substance: LEVOTHYROXINE
  5. VITAMIN B [Concomitant]
     Active Substance: VITAMIN B
  6. VITAMIN D [Concomitant]
     Active Substance: VITAMIN D NOS

REACTIONS (2)
  - Nephrolithiasis [None]
  - Blood pressure decreased [None]

NARRATIVE: CASE EVENT DATE: 20220601
